FAERS Safety Report 4578469-1 (Version None)
Quarter: 2005Q1

REPORT INFORMATION
  Report Type: 
  Country: None (occurrence: None)
  Receive Date: 20050202
  Receipt Date: 20050202
  Transmission Date: 20050727
  Serious: Yes (Hospitalization)
  Sender: FDA-Public Use
  Company Number: None

PATIENT
  Age: 66 Year
  Sex: Female
  Weight: 76.6579 kg

DRUGS (2)
  1. VYTORIN [Suspect]
     Indication: DYSLIPIDAEMIA
     Dosage: ONE PO QD
     Route: 048
     Dates: start: 20041207
  2. VYTORIN [Suspect]
     Indication: DYSLIPIDAEMIA
     Dosage: ONE PO QD
     Route: 048
     Dates: start: 20050112

REACTIONS (5)
  - ABDOMINAL PAIN UPPER [None]
  - CHROMATURIA [None]
  - LIVER FUNCTION TEST ABNORMAL [None]
  - NAUSEA [None]
  - VOMITING [None]
